FAERS Safety Report 6386520-1 (Version None)
Quarter: 2009Q4

REPORT INFORMATION
  Report Type: 
  Country: None (occurrence: None)
  Receive Date: 20091002
  Receipt Date: 20090316
  Transmission Date: 20100525
  Serious: No
  Sender: FDA-Public Use
  Company Number: US-ASTRAZENECA-2009UW06722

PATIENT
  Age: 80 Year
  Sex: Female
  Weight: 77.1 kg

DRUGS (3)
  1. ARIMIDEX [Suspect]
     Route: 048
  2. MAXZIDE [Concomitant]
     Dates: end: 20090101
  3. VITAMINS [Concomitant]

REACTIONS (3)
  - ALOPECIA [None]
  - ARTHRALGIA [None]
  - TINNITUS [None]
